FAERS Safety Report 5486693-9 (Version None)
Quarter: 2007Q4

REPORT INFORMATION
  Report Type: 
  Country: None (occurrence: None)
  Receive Date: 20071016
  Receipt Date: 20071008
  Transmission Date: 20080405
  Serious: Yes (Other)
  Sender: FDA-Public Use
  Company Number: US-BAYER-200713120BWH

PATIENT
  Age: 81 Year
  Sex: Male

DRUGS (4)
  1. AVELOX [Suspect]
     Indication: URINARY TRACT INFECTION
     Route: 048
  2. FLOMAX [Concomitant]
  3. COZAAR [Concomitant]
  4. INDENT [Concomitant]

REACTIONS (2)
  - DELUSION [None]
  - DEMENTIA [None]
